FAERS Safety Report 9629933 (Version 1)
Quarter: 2013Q4

REPORT INFORMATION
  Report Type: Spontaneous
  Country: US (occurrence: US)
  Receive Date: 20131017
  Receipt Date: 20131017
  Transmission Date: 20140711
  Serious: Yes (Other)
  Sender: FDA-Public Use
  Company Number: US-PFIZER INC-2013293820

PATIENT
  Age: 56 Year
  Sex: Female
  Weight: 113 kg

DRUGS (5)
  1. ADVIL [Suspect]
     Indication: ARTHRITIS
     Dosage: UNK, AS NEEDED
  2. ADVIL [Suspect]
     Indication: PAIN
  3. LEXAPRO [Suspect]
     Indication: ARTHRITIS
     Dosage: 10 MG, 1X/DAY
  4. SYNTHROID [Concomitant]
     Indication: THYROID DISORDER
     Dosage: 0.125 MG, 2X/DAY
  5. BENICAR [Concomitant]
     Indication: BLOOD PRESSURE ABNORMAL
     Dosage: 40 MG, 1X/DAY

REACTIONS (3)
  - Large intestinal haemorrhage [Unknown]
  - Anaemia [Unknown]
  - Off label use [Unknown]
